FAERS Safety Report 12286465 (Version 1)
Quarter: 2016Q2

REPORT INFORMATION
  Report Type: Spontaneous
  Country: US (occurrence: None)
  Receive Date: 20160419
  Receipt Date: 20160419
  Transmission Date: 20160815
  Serious: No
  Sender: FDA-Public Use
  Company Number: None

PATIENT
  Age: 63 Year
  Sex: Female
  Weight: 98.9 kg

DRUGS (2)
  1. CARFILZOMIB [Suspect]
     Active Substance: CARFILZOMIB
     Dosage: 20MG/M2 IV DAYS 1, 2, 8, 9, 15, 16 (CYCLE 1)
     Route: 042
  2. DEXAMETHASONE. [Suspect]
     Active Substance: DEXAMETHASONE
     Dosage: 20MG IV DAYS 1, 2, 8, 9, 15, 16/PATIENT COMPLETED CYCLE 4 ON 3/22/2016.
     Route: 042
     Dates: end: 20160322

REACTIONS (7)
  - Costochondritis [None]
  - Osteolysis [None]
  - Pyrexia [None]
  - Cellulitis [None]
  - Musculoskeletal pain [None]
  - Device related infection [None]
  - Chest pain [None]

NARRATIVE: CASE EVENT DATE: 20160407
